FAERS Safety Report 5361058-9 (Version None)
Quarter: 2007Q2

REPORT INFORMATION
  Report Type: 
  Country: None (occurrence: None)
  Receive Date: 20070612
  Receipt Date: 20070529
  Transmission Date: 20071010
  Serious: Yes (Other)
  Sender: FDA-Public Use
  Company Number: 2007316264

PATIENT
  Age: 61 Year
  Sex: Male
  Weight: 83.9 kg

DRUGS (2)
  1. ROGAINE [Suspect]
     Indication: ALOPECIA
     Dosage: 1 ML TWICE DAILY, TOPICAL
     Route: 061
     Dates: start: 20070401, end: 20070408
  2. CRESTOR [Suspect]
     Indication: BLOOD CHOLESTEROL

REACTIONS (3)
  - HYPERSENSITIVITY [None]
  - PERIORBITAL CELLULITIS [None]
  - RASH MACULO-PAPULAR [None]
